FAERS Safety Report 9155737 (Version 2)
Quarter: 2013Q2

REPORT INFORMATION
  Report Type: Spontaneous
  Country: KE (occurrence: KE)
  Receive Date: 20130311
  Receipt Date: 20130610
  Transmission Date: 20140414
  Serious: Yes (Death, Other)
  Sender: FDA-Public Use
  Company Number: PHHY2012KE020261

PATIENT
  Age: 65 Year
  Sex: Female

DRUGS (3)
  1. GLIVEC [Suspect]
     Indication: GASTROINTESTINAL STROMAL TUMOUR
     Dosage: 400 MG, UNK
  2. SILDENAFIL [Concomitant]
     Dosage: UNK UKN, UNK
  3. LASIX [Concomitant]
     Dosage: UNK UKN, UNK

REACTIONS (5)
  - Infection [Fatal]
  - Metastases to spine [Unknown]
  - Paralysis [Unknown]
  - Decubitus ulcer [Unknown]
  - Lung disorder [Unknown]
